FAERS Safety Report 10664787 (Version 1)
Quarter: 2014Q4

REPORT INFORMATION
  Report Type: Spontaneous
  Country: US (occurrence: None)
  Receive Date: 20141205
  Receipt Date: 20141205
  Transmission Date: 20150529
  Serious: Yes (Other)
  Sender: FDA-Public Use
  Company Number: 163-POMAL-14080751

PATIENT
  Age: 63 Year
  Sex: Male

DRUGS (15)
  1. METHYLPHENIDATE HCL (METHYLPHENIDATE HYDROCHLORIDE) [Concomitant]
  2. ACYCLOVIR (ACYCLOVIR) [Concomitant]
     Active Substance: ACYCLOVIR
  3. KLONOPIN (CLOMAZEPAM) [Concomitant]
  4. PROCHLORPREAZINE MALEATE (PROCHLORPRAZINE MALEATE) [Concomitant]
  5. POMALYST [Suspect]
     Active Substance: POMALIDOMIDE
     Indication: PLASMA CELL MYELOMA
     Dosage: 4 MG, 21 IN 21 D, PO
     Route: 048
     Dates: start: 20140331
  6. MAGNESIUM OXIDE. [Concomitant]
     Active Substance: MAGNESIUM OXIDE
  7. BENDAMUSTINE (BENDAMUSTINE) (BENDAMUSTINE) [Concomitant]
     Active Substance: BENDAMUSTINE
  8. ZYRTEC [Concomitant]
     Active Substance: CETIRIZINE HYDROCHLORIDE
  9. PREDNISONE (PREDNISONE) [Concomitant]
     Active Substance: PREDNISONE
  10. OMEPRAZOLE (OMEPRAZOLE) [Concomitant]
     Active Substance: OMEPRAZOLE
  11. NEUTONTIN (GABAPENTIN) [Concomitant]
  12. CELEXA (CITALOPAM HYDROCHLORIDE) [Concomitant]
  13. SODIUM BICARBONATE (SODIUM BICARBONATE) [Concomitant]
  14. OXYCODONE HCL (OXYCODONE HYDROCHLORIDE) [Concomitant]
     Active Substance: OXYCODONE HYDROCHLORIDE
  15. METOPROLOL TARTRATE (METOPROLOL TARTRATE) [Concomitant]

REACTIONS (2)
  - Dyspnoea [None]
  - Clostridium difficile colitis [None]

NARRATIVE: CASE EVENT DATE: 201407
